FAERS Safety Report 4524596-4 (Version None)
Quarter: 2004Q4

REPORT INFORMATION
  Report Type: 
  Country: None (occurrence: None)
  Receive Date: 20041117
  Receipt Date: 20040831
  Transmission Date: 20050328
  Serious: Yes (Hospitalization)
  Sender: FDA-Public Use
  Company Number: US-JNJFOC-20040705766

PATIENT
  Age: 69 Year
  Sex: Female

DRUGS (2)
  1. LEVAQUIN [Suspect]
     Indication: PNEUMONIA
     Dosage: 500 MG, INTRAVENOUS
     Route: 042
     Dates: start: 20040414, end: 20040415
  2. PARACETAMOL WITH CODEINE (PANADEINE CO) [Concomitant]

REACTIONS (7)
  - DRUG INEFFECTIVE [None]
  - EMPYEMA [None]
  - FATIGUE [None]
  - HYPOXIA [None]
  - MALAISE [None]
  - PLEURITIC PAIN [None]
  - PNEUMOCOCCAL BACTERAEMIA [None]
